FAERS Safety Report 22624836 (Version 1)
Quarter: 2023Q2

REPORT INFORMATION
  Report Type: Spontaneous
  Country: IE (occurrence: IE)
  Receive Date: 20230621
  Receipt Date: 20230621
  Transmission Date: 20230722
  Serious: Yes (Other)
  Sender: FDA-Public Use
  Company Number: IE-UCBSA-2023030705

PATIENT
  Age: 39 Year
  Sex: Female

DRUGS (8)
  1. LEVETIRACETAM [Suspect]
     Active Substance: LEVETIRACETAM
     Indication: Seizure
     Dosage: 1500 MILLIGRAM, 2X/DAY (BID)
  2. LEVETIRACETAM [Suspect]
     Active Substance: LEVETIRACETAM
     Dosage: 2000 MILLIGRAM, 2X/DAY (BID)
  3. LEVETIRACETAM [Suspect]
     Active Substance: LEVETIRACETAM
     Dosage: 1000 MG IN MORNING, 3500 MG AT NIGHT
  4. LEVETIRACETAM [Suspect]
     Active Substance: LEVETIRACETAM
     Dosage: 500 MG IN MORNING AND 2000 MG AT NIGHT
  5. LAMOTRIGINE [Suspect]
     Active Substance: LAMOTRIGINE
     Indication: Seizure
     Dosage: 175 MILLIGRAM, 2X/DAY (BID)
  6. LAMOTRIGINE [Suspect]
     Active Substance: LAMOTRIGINE
     Dosage: TITRATED LAMOTRIGINE TO 250 MG BID
  7. LAMOTRIGINE [Suspect]
     Active Substance: LAMOTRIGINE
     Dosage: 200 MG IN MORNING, 500 MG AT NIGHT
  8. LAMOTRIGINE [Suspect]
     Active Substance: LAMOTRIGINE
     Dosage: 100 MG IN MORNING, 300 MG AT NIGHT

REACTIONS (7)
  - Seizure [Recovered/Resolved]
  - Epilepsy [Recovered/Resolved]
  - Maternal exposure before pregnancy [Unknown]
  - Maternal exposure during pregnancy [Unknown]
  - Multiple-drug resistance [Unknown]
  - Off label use [Unknown]
  - Prescribed overdose [Unknown]
